FAERS Safety Report 9580797 (Version 1)
Quarter: 2013Q4

REPORT INFORMATION
  Report Type: Spontaneous
  Country: US (occurrence: None)
  Receive Date: 20131001
  Receipt Date: 20131001
  Transmission Date: 20140711
  Serious: Yes (Disabling)
  Sender: FDA-Public Use
  Company Number: None

PATIENT
  Age: 78 Year
  Sex: Female
  Weight: 68.04 kg

DRUGS (5)
  1. LEVOTHYROXIN [Suspect]
     Indication: HYPOTHYROIDISM
     Dosage: 1 TABLET
     Route: 048
     Dates: start: 20120901, end: 20130611
  2. PRAVASTATIN [Concomitant]
  3. ADVIL [Concomitant]
  4. ALLEGRA [Concomitant]
  5. VITAMIN D [Concomitant]

REACTIONS (5)
  - Hypersensitivity [None]
  - Ear infection [None]
  - Respiratory disorder [None]
  - Pulmonary congestion [None]
  - Sinus disorder [None]
